FAERS Safety Report 23259975 (Version 1)
Quarter: 2023Q4

REPORT INFORMATION
  Report Type: Spontaneous
  Country: US (occurrence: US)
  Receive Date: 20231204
  Receipt Date: 20231204
  Transmission Date: 20240110
  Serious: No
  Sender: FDA-Public Use
  Company Number: US-BAYER-2023A170296

PATIENT
  Sex: Male
  Weight: 67.075 kg

DRUGS (3)
  1. REGORAFENIB [Suspect]
     Active Substance: REGORAFENIB
     Indication: Colorectal cancer
     Dosage: UNK
     Dates: start: 20231023
  2. MEBENDAZOLE [Concomitant]
     Active Substance: MEBENDAZOLE
  3. ZIEXTENZO [Concomitant]
     Active Substance: PEGFILGRASTIM-BMEZ

REACTIONS (2)
  - Skin disorder [None]
  - Feeling abnormal [None]

NARRATIVE: CASE EVENT DATE: 20231101
